FAERS Safety Report 9286388 (Version 1)
Quarter: 2013Q2

REPORT INFORMATION
  Report Type: Spontaneous
  Country: US (occurrence: US)
  Receive Date: 20130513
  Receipt Date: 20130513
  Transmission Date: 20140414
  Serious: No
  Sender: FDA-Public Use
  Company Number: US-BAYER-2013-059370

PATIENT
  Age: 73 Year
  Sex: Male
  Weight: 71.66 kg

DRUGS (3)
  1. ALEVE CAPLET [Suspect]
     Indication: BACK PAIN
     Dosage: 1 DF, BID
     Route: 048
     Dates: start: 2004, end: 20130504
  2. STEROID ANTIBACTERIALS [Concomitant]
  3. ONE-A-DAY MENS VITACRAVES GUMMIES [Concomitant]

REACTIONS (2)
  - Nausea [Recovering/Resolving]
  - Incorrect drug administration duration [None]
